FAERS Safety Report 5956284-1 (Version None)
Quarter: 2008Q4

REPORT INFORMATION
  Report Type: 
  Country: None (occurrence: None)
  Receive Date: 20081112
  Receipt Date: 20081013
  Transmission Date: 20090506
  Serious: Yes (Life-Threatening)
  Sender: FDA-Public Use
  Company Number: 08H-163-0315139-00

PATIENT
  Age: 65 Year
  Sex: Male

DRUGS (2)
  1. DOBUTAMINE IN DEXTROSE 5% [Suspect]
     Indication: RENAL DISORDER
     Dosage: 13CC, BOLUS, INTRAVENOUS
     Route: 040
     Dates: start: 20081013, end: 20081013
  2. MAGNESIUM SULFATE [Suspect]
     Dosage: INTRAVENOUS
     Route: 042
     Dates: start: 20081013, end: 20081013

REACTIONS (3)
  - FLUSHING [None]
  - MEDICATION ERROR [None]
  - VENTRICULAR TACHYCARDIA [None]
